FAERS Safety Report 13717917 (Version 4)
Quarter: 2017Q4

REPORT INFORMATION
  Report Type: Report from Study
  Country: US (occurrence: US)
  Receive Date: 20170705
  Receipt Date: 20171123
  Transmission Date: 20180320
  Serious: Yes (Other)
  Sender: FDA-Public Use
  Company Number: US-JNJFOC-20170626289

PATIENT
  Age: 66 Year
  Sex: Male

DRUGS (2)
  1. RITUXAN [Concomitant]
     Active Substance: RITUXIMAB
  2. IMBRUVICA [Suspect]
     Active Substance: IBRUTINIB
     Indication: WALDENSTROM^S MACROGLOBULINAEMIA
     Route: 048
     Dates: start: 20170329, end: 20170621

REACTIONS (10)
  - White blood cell count abnormal [Recovering/Resolving]
  - Platelet count abnormal [Recovering/Resolving]
  - Muscle atrophy [Unknown]
  - Lymphocyte count abnormal [Recovering/Resolving]
  - Drug ineffective [Unknown]
  - Marginal zone lymphoma [Unknown]
  - Fatigue [Unknown]
  - Anaemia [Recovering/Resolving]
  - Blood immunoglobulin M abnormal [Recovering/Resolving]
  - Blood count abnormal [Recovering/Resolving]

NARRATIVE: CASE EVENT DATE: 201703
